FAERS Safety Report 9315114 (Version 2)
Quarter: 2013Q2

REPORT INFORMATION
  Report Type: Spontaneous
  Country: US (occurrence: US)
  Receive Date: 20130529
  Receipt Date: 20130529
  Transmission Date: 20140414
  Serious: No
  Sender: FDA-Public Use
  Company Number: US-MYLANLABS-2013S1004474

PATIENT
  Age: 46 Year
  Sex: Female
  Weight: 83.01 kg

DRUGS (2)
  1. MONTELUKAST SODIUM [Suspect]
     Indication: RHINITIS ALLERGIC
     Dates: start: 201210, end: 201211
  2. TESTOSTERONE [Concomitant]

REACTIONS (2)
  - Drug ineffective [Not Recovered/Not Resolved]
  - Rhinitis allergic [Not Recovered/Not Resolved]
